FAERS Safety Report 4477292-6 (Version None)
Quarter: 2004Q4

REPORT INFORMATION
  Report Type: 
  Country: None (occurrence: None)
  Receive Date: 20041018
  Receipt Date: 20040331
  Transmission Date: 20050328
  Serious: Yes (Hospitalization)
  Sender: FDA-Public Use
  Company Number: PHBS2004JP04445

PATIENT
  Age: 30 Year
  Sex: Male

DRUGS (9)
  1. TEGRETOL [Suspect]
     Indication: BIPOLAR I DISORDER
     Dosage: 400 MG/DAY
     Route: 048
     Dates: start: 20040315, end: 20040321
  2. TEGRETOL [Suspect]
     Dosage: 800 MG/DAY
     Route: 048
     Dates: start: 20040322, end: 20040326
  3. LANDSEN [Suspect]
     Indication: BIPOLAR I DISORDER
     Dosage: 1 DF/DAY
     Route: 048
  4. LITHIUM CARBONATE [Concomitant]
     Indication: BIPOLAR I DISORDER
     Dosage: 1.2 G/DAY
     Route: 048
  5. DEPAKENE [Concomitant]
     Indication: BIPOLAR I DISORDER
     Dosage: 300 MG/DAY
     Route: 048
     Dates: start: 20030601
  6. SENIRAN [Concomitant]
     Indication: BIPOLAR I DISORDER
     Dosage: 5 MG/DAY
     Route: 048
  7. MYSLEE [Concomitant]
     Indication: BIPOLAR I DISORDER
     Dosage: 10 MG/DAY
     Route: 048
  8. BROTIZOLAM [Concomitant]
     Indication: BIPOLAR I DISORDER
     Dosage: 0.25 MG/DAY
     Route: 048
  9. ZOTEPINE [Suspect]
     Indication: BIPOLAR I DISORDER
     Dosage: 50 MG/DAY
     Route: 048
     Dates: start: 20040322, end: 20040326

REACTIONS (17)
  - ALANINE AMINOTRANSFERASE INCREASED [None]
  - ARTHRALGIA [None]
  - ASPARTATE AMINOTRANSFERASE INCREASED [None]
  - BLOOD ALKALINE PHOSPHATASE INCREASED [None]
  - BLOOD CREATINE PHOSPHOKINASE INCREASED [None]
  - BLOOD LACTATE DEHYDROGENASE INCREASED [None]
  - C-REACTIVE PROTEIN INCREASED [None]
  - GAMMA-GLUTAMYLTRANSFERASE INCREASED [None]
  - LIVER FUNCTION TEST ABNORMAL [None]
  - LYMPHADENOPATHY [None]
  - LYMPHOCYTE STIMULATION TEST POSITIVE [None]
  - PYREXIA [None]
  - RASH [None]
  - RUBELLA [None]
  - RUBELLA ANTIBODY POSITIVE [None]
  - SEDATION [None]
  - URTICARIA [None]
